FAERS Safety Report 17647487 (Version 3)
Quarter: 2020Q2

REPORT INFORMATION
  Report Type: Report from Study
  Country: US (occurrence: US)
  Receive Date: 20200408
  Receipt Date: 20200522
  Transmission Date: 20200713
  Serious: Yes (Hospitalization, Disabling)
  Sender: FDA-Public Use
  Company Number: US-PFIZER INC-2019326745

PATIENT
  Age: 64 Year
  Sex: Male
  Weight: 65.1 kg

DRUGS (42)
  1. PF-05082566 [Suspect]
     Active Substance: UTOMILUMAB
     Dosage: 50
     Route: 042
     Dates: start: 20191031, end: 20191031
  2. VENTOLIN HFA [Concomitant]
     Active Substance: ALBUTEROL SULFATE
     Dosage: UNK
     Dates: start: 2017
  3. ALLOPURINOL. [Concomitant]
     Active Substance: ALLOPURINOL
     Dosage: UNK
     Dates: start: 20190704, end: 20190704
  4. ACYCLOVIR [ACICLOVIR] [Concomitant]
     Active Substance: ACYCLOVIR
     Dosage: UNK
     Dates: start: 20190704
  5. COLACE [Concomitant]
     Active Substance: DOCUSATE SODIUM
     Dosage: UNK
     Dates: start: 20190708, end: 20190723
  6. NORMAL SALINE [Concomitant]
     Active Substance: SODIUM CHLORIDE
     Dosage: UNK
     Dates: start: 20190708, end: 20190722
  7. DESYREL [Concomitant]
     Active Substance: TRAZODONE HYDROCHLORIDE
     Dosage: UNK
     Dates: start: 20190709, end: 20190723
  8. MELATONIN [Concomitant]
     Active Substance: MELATONIN
     Dosage: UNK
     Dates: start: 20190716, end: 20190716
  9. PF-05082566 [Suspect]
     Active Substance: UTOMILUMAB
     Dosage: 50
     Route: 042
     Dates: start: 20191002, end: 20191002
  10. EMEND [FOSAPREPITANT MEGLUMINE] [Concomitant]
     Dosage: UNK
     Dates: start: 20190704, end: 20190704
  11. ZOFRAN [Concomitant]
     Active Substance: ONDANSETRON HYDROCHLORIDE
     Dosage: UNK
     Dates: start: 20190704, end: 20190704
  12. PEPCID [Concomitant]
     Active Substance: FAMOTIDINE
     Dosage: UNK
     Dates: start: 20190708, end: 20190711
  13. DILAUDID [Concomitant]
     Active Substance: HYDROMORPHONE HYDROCHLORIDE
     Dosage: UNK
     Dates: start: 20190714, end: 20190714
  14. PF-05082566 [Suspect]
     Active Substance: UTOMILUMAB
     Indication: DIFFUSE LARGE B-CELL LYMPHOMA
     Dosage: 30 MG, SINGLE
     Route: 042
     Dates: start: 20190710, end: 20190710
  15. ALVESCO [Concomitant]
     Active Substance: CICLESONIDE
     Dosage: UNK
     Dates: start: 20190418
  16. LIDOCAINE. [Concomitant]
     Active Substance: LIDOCAINE
     Dosage: UNK
     Dates: start: 20190715, end: 20190715
  17. PROVENTIL [Concomitant]
     Active Substance: ALBUTEROL
     Dosage: UNK
     Dates: start: 20190718, end: 20190718
  18. ZYRTEC [Concomitant]
     Active Substance: CETIRIZINE HYDROCHLORIDE
     Dosage: UNK
     Dates: start: 20190719
  19. PF-05082566 [Suspect]
     Active Substance: UTOMILUMAB
     Dosage: 30
     Route: 042
     Dates: start: 20190905, end: 20190905
  20. MESNA. [Suspect]
     Active Substance: MESNA
     Indication: PROPHYLAXIS
     Dosage: UNK
     Route: 042
  21. REVATIO [Concomitant]
     Active Substance: SILDENAFIL CITRATE
     Dosage: UNK
     Dates: start: 2017
  22. TYLENOL [Concomitant]
     Active Substance: ACETAMINOPHEN
     Dosage: UNK
     Dates: start: 20190709, end: 20190723
  23. SENOKOT [Concomitant]
     Active Substance: SENNOSIDES
     Dosage: UNK
     Dates: start: 20190709, end: 20190714
  24. IBUPROFEN. [Concomitant]
     Active Substance: IBUPROFEN
     Dosage: UNK
     Dates: start: 20190715, end: 20190715
  25. OXYCODONE [Concomitant]
     Active Substance: OXYCODONE
     Dosage: UNK
     Dates: start: 20190718, end: 20190718
  26. PF-05082566 [Suspect]
     Active Substance: UTOMILUMAB
     Dosage: 30
     Route: 042
     Dates: start: 20190807, end: 20190807
  27. BENADRYL [Concomitant]
     Active Substance: DIPHENHYDRAMINE HYDROCHLORIDE
     Dosage: UNK
     Dates: start: 20190704, end: 20190709
  28. ACETAMINOPHEN. [Concomitant]
     Active Substance: ACETAMINOPHEN
     Dosage: UNK
     Dates: start: 20190714, end: 20190715
  29. PF-05082566 [Suspect]
     Active Substance: UTOMILUMAB
     Dosage: 50
     Route: 042
     Dates: start: 20191126, end: 20191126
  30. FLUDARABINE PHOSPHATE. [Suspect]
     Active Substance: FLUDARABINE PHOSPHATE
     Indication: BONE MARROW CONDITIONING REGIMEN
     Dosage: 30, QD
     Route: 042
     Dates: start: 20190704, end: 20190706
  31. KEPPRA [Concomitant]
     Active Substance: LEVETIRACETAM
     Dosage: UNK
     Dates: start: 20190708, end: 20190721
  32. FENTANYL. [Concomitant]
     Active Substance: FENTANYL
     Dosage: UNK
     Dates: start: 20190715, end: 20190715
  33. VERSED [Concomitant]
     Active Substance: MIDAZOLAM HYDROCHLORIDE
     Dosage: UNK
     Dates: start: 20190715, end: 20190715
  34. CYCLOPHOSPHAMIDE. [Suspect]
     Active Substance: CYCLOPHOSPHAMIDE
     Indication: BONE MARROW CONDITIONING REGIMEN
     Dosage: ^500,^ QD^
     Route: 042
     Dates: start: 20190704, end: 20190706
  35. COMPAZINE [Concomitant]
     Active Substance: PROCHLORPERAZINE MALEATE
     Dosage: UNK
     Dates: start: 20190704, end: 20190707
  36. NEUPOGEN [Concomitant]
     Active Substance: FILGRASTIM
     Dosage: UNK
     Dates: start: 20190714, end: 20190717
  37. GADOBENATE DIMEGLUMINE [Concomitant]
     Active Substance: GADOBENATE DIMEGLUMINE
     Dosage: UNK
     Dates: start: 20190714, end: 20190721
  38. AXICABTAGENE CILOLEUCEL [Suspect]
     Active Substance: AXICABTAGENE CILOLEUCEL
     Indication: DIFFUSE LARGE B-CELL LYMPHOMA
     Dosage: 68 ML, SINGLE
     Route: 042
     Dates: start: 20190709, end: 20190709
  39. ATIVAN [Concomitant]
     Active Substance: LORAZEPAM
     Dosage: UNK
     Dates: start: 20190704, end: 20190721
  40. POTASSIUM CHLORIDE. [Concomitant]
     Active Substance: POTASSIUM CHLORIDE
     Dosage: UNK
     Dates: start: 20190709, end: 20190719
  41. ZOSYN [Concomitant]
     Active Substance: PIPERACILLIN SODIUM\TAZOBACTAM SODIUM
     Dosage: UNK
     Dates: start: 20190714, end: 20190715
  42. PROTONIX [Concomitant]
     Active Substance: PANTOPRAZOLE SODIUM
     Dosage: UNK
     Dates: start: 20190718

REACTIONS (6)
  - Pyrexia [Recovered/Resolved]
  - Hypotension [Recovered/Resolved]
  - Dizziness [Recovered/Resolved]
  - Confusional state [Recovered/Resolved]
  - Hypotension [Recovered/Resolved]
  - Aphasia [Recovered/Resolved]

NARRATIVE: CASE EVENT DATE: 20190716
